FAERS Safety Report 13444044 (Version 1)
Quarter: 2017Q2

REPORT INFORMATION
  Report Type: Spontaneous
  Country: RU (occurrence: RU)
  Receive Date: 20170414
  Receipt Date: 20170414
  Transmission Date: 20170830
  Serious: Yes (Hospitalization)
  Sender: FDA-Public Use
  Company Number: RU-GUERBET-RU-20170011

PATIENT
  Age: 48 Year
  Sex: Female

DRUGS (1)
  1. OPTIMARK [Suspect]
     Active Substance: GADOVERSETAMIDE
     Indication: NUCLEAR MAGNETIC RESONANCE IMAGING
     Route: 042
     Dates: start: 20170405, end: 20170405

REACTIONS (6)
  - Respiratory rate increased [Recovering/Resolving]
  - Tachycardia [Recovering/Resolving]
  - Face oedema [Recovered/Resolved]
  - Dyspnoea [Recovering/Resolving]
  - Hyperaemia [Recovering/Resolving]
  - Presyncope [Recovering/Resolving]

NARRATIVE: CASE EVENT DATE: 20170405
